FAERS Safety Report 5304503-7 (Version None)
Quarter: 2007Q2

REPORT INFORMATION
  Report Type: 
  Country: None (occurrence: None)
  Receive Date: 20070423
  Receipt Date: 20070412
  Transmission Date: 20071010
  Serious: Yes (Hospitalization, Other)
  Sender: FDA-Public Use
  Company Number: AE-JNJFOC-20070402662

PATIENT
  Sex: Female
  Weight: 108 kg

DRUGS (3)
  1. CAELYX [Suspect]
     Indication: OVARIAN CANCER METASTATIC
     Route: 042
  2. DECADRON [Concomitant]
     Indication: PREMEDICATION
     Route: 042
  3. ZOFRAN [Concomitant]
     Indication: PREMEDICATION
     Route: 042

REACTIONS (5)
  - BLINDNESS TRANSIENT [None]
  - CHEST DISCOMFORT [None]
  - DYSPNOEA [None]
  - INFUSION RELATED REACTION [None]
  - UNRESPONSIVE TO STIMULI [None]
